FAERS Safety Report 21254528 (Version 2)
Quarter: 2023Q1

REPORT INFORMATION
  Report Type: Report from Study
  Country: CR (occurrence: CR)
  Receive Date: 20220825
  Receipt Date: 20230323
  Transmission Date: 20230417
  Serious: Yes (Other)
  Sender: FDA-Public Use
  Company Number: CR-ABBOTT-2021A-1339152

PATIENT
  Age: 34 Year
  Sex: Female

DRUGS (3)
  1. FENOFIBRATE [Suspect]
     Active Substance: FENOFIBRATE
     Indication: Hypertriglyceridaemia
     Route: 048
     Dates: start: 202005, end: 202108
  2. ESCITALOPRAM [Suspect]
     Active Substance: ESCITALOPRAM OXALATE
     Indication: Migraine
     Route: 048
     Dates: start: 202006, end: 202108
  3. TRILIPIX [Suspect]
     Active Substance: FENOFIBRIC ACID
     Indication: Blood triglycerides increased
     Route: 048

REACTIONS (8)
  - Dizziness [Recovered/Resolved]
  - Vertigo [Recovered/Resolved]
  - Withdrawal syndrome [Recovered/Resolved]
  - Pancreatitis [Unknown]
  - Blood triglycerides increased [Unknown]
  - Normal newborn [Unknown]
  - Maternal exposure during pregnancy [Unknown]
  - Maternal exposure during breast feeding [Unknown]

NARRATIVE: CASE EVENT DATE: 20210817
